FAERS Safety Report 24232188 (Version 2)
Quarter: 2025Q2

REPORT INFORMATION
  Report Type: Spontaneous
  Country: US (occurrence: US)
  Receive Date: 20240821
  Receipt Date: 20250530
  Transmission Date: 20250717
  Serious: Yes (Other)
  Sender: CIPLA
  Company Number: US-CIPLA LTD.-2024US08868

PATIENT

DRUGS (1)
  1. ALBUTEROL [Suspect]
     Active Substance: ALBUTEROL
     Indication: Product used for unknown indication

REACTIONS (2)
  - Asthma [Unknown]
  - Device delivery system issue [Unknown]
